FAERS Safety Report 4907790-X (Version None)
Quarter: 2006Q1

REPORT INFORMATION
  Report Type: 
  Country: None (occurrence: None)
  Receive Date: 20060210
  Receipt Date: 20060130
  Transmission Date: 20060701
  Serious: Yes (Hospitalization)
  Sender: FDA-Public Use
  Company Number: GB-BRISTOL-MYERS SQUIBB COMPANY-13264692

PATIENT
  Age: 30 Year
  Sex: Male

DRUGS (1)
  1. ABILIFY [Suspect]
     Dosage: INCREASED TO 25 MG
     Route: 048

REACTIONS (3)
  - AGITATION [None]
  - HOMICIDAL IDEATION [None]
  - PARANOIA [None]
